FAERS Safety Report 13456802 (Version 2)
Quarter: 2017Q2

REPORT INFORMATION
  Report Type: Spontaneous
  Country: US (occurrence: US)
  Receive Date: 20170419
  Receipt Date: 20170523
  Transmission Date: 20170830
  Serious: Yes (Other)
  Sender: FDA-Public Use
  Company Number: US-ASTELLAS-2017US014195

PATIENT
  Sex: Female

DRUGS (1)
  1. CRESEMBA [Suspect]
     Active Substance: ISAVUCONAZONIUM SULFATE
     Indication: ASPERGILLUS INFECTION
     Dosage: 372 MG (2 X 186MG), ONCE DAILY
     Route: 065

REACTIONS (1)
  - Liver disorder [Unknown]
